FAERS Safety Report 7342558-9 (Version None)
Quarter: 2011Q1

REPORT INFORMATION
  Report Type: 
  Country: None (occurrence: None)
  Receive Date: 20110310
  Receipt Date: 20110307
  Transmission Date: 20110831
  Serious: No
  Sender: FDA-Public Use
  Company Number: US-TEVA-270372USA

PATIENT
  Sex: Female

DRUGS (3)
  1. AMBIEN [Concomitant]
     Indication: INSOMNIA
  2. PLAN B ONE-STEP [Suspect]
     Indication: POST COITAL CONTRACEPTION
     Route: 048
     Dates: start: 20110213, end: 20110213
  3. PLAN B ONE-STEP [Suspect]
     Route: 048
     Dates: start: 20110214, end: 20110214

REACTIONS (2)
  - MENSTRUATION DELAYED [None]
  - MENSTRUATION IRREGULAR [None]
